FAERS Safety Report 7042410-2 (Version None)
Quarter: 2010Q4

REPORT INFORMATION
  Report Type: 
  Country: None (occurrence: None)
  Receive Date: 20101013
  Receipt Date: 20100112
  Transmission Date: 20110411
  Serious: No
  Sender: FDA-Public Use
  Company Number: US-ASTRAZENECA-2010SE01394

PATIENT
  Age: 59 Year
  Sex: Female

DRUGS (1)
  1. SYMBICORT [Suspect]
     Dosage: 80/4.5MCG FOR ABOUT 3-4 MONTHS
     Route: 055

REACTIONS (3)
  - FUNGAL INFECTION [None]
  - PHARYNGEAL OEDEMA [None]
  - SWOLLEN TONGUE [None]
